FAERS Safety Report 8788847 (Version 2)
Quarter: 2013Q4

REPORT INFORMATION
  Report Type: Spontaneous
  Country: US (occurrence: US)
  Receive Date: 20120916
  Receipt Date: 20131101
  Transmission Date: 20140711
  Serious: Yes (Hospitalization)
  Sender: FDA-Public Use
  Company Number: US-009507513-1209USA003925

PATIENT
  Sex: Male

DRUGS (4)
  1. ISENTRESS [Suspect]
     Dosage: 800 MG
     Route: 048
  2. VIREAD [Suspect]
     Dosage: 81.6 MG
     Route: 048
  3. ADCIRCA [Suspect]
     Route: 048
  4. EPIVIR [Suspect]
     Route: 048

REACTIONS (2)
  - Anaemia [Unknown]
  - Neutropenia [Unknown]
